FAERS Safety Report 25612754 (Version 2)
Quarter: 2025Q4

REPORT INFORMATION
  Report Type: Spontaneous
  Country: JP (occurrence: JP)
  Receive Date: 20250728
  Receipt Date: 20251010
  Transmission Date: 20260118
  Serious: Yes (Hospitalization)
  Sender: MERCK SHARP & DOHME LLC
  Company Number: JP-009507513-2310854

PATIENT
  Age: 6 Decade
  Sex: Female

DRUGS (2)
  1. PEMBROLIZUMAB [Suspect]
     Active Substance: PEMBROLIZUMAB
     Indication: Bladder transitional cell carcinoma stage IV
     Route: 041
  2. enformatumab vedotin [Concomitant]
     Indication: Bladder transitional cell carcinoma stage IV
     Route: 041

REACTIONS (3)
  - Ascites [Unknown]
  - Pneumonitis [Unknown]
  - Pyrexia [Unknown]
